FAERS Safety Report 10423410 (Version 1)
Quarter: 2014Q3

REPORT INFORMATION
  Report Type: Spontaneous
  Country: US (occurrence: None)
  Receive Date: 20140722
  Receipt Date: 20140722
  Transmission Date: 20150326
  Serious: No
  Sender: FDA-Public Use
  Company Number: AEGR000410

PATIENT
  Age: 66 Year
  Sex: Female
  Weight: 68.5 kg

DRUGS (10)
  1. JUXTAPID [Suspect]
     Active Substance: LOMITAPIDE MESYLATE
     Indication: PRODUCT USED FOR UNKNOWN INDICATION
     Route: 048
     Dates: start: 20140306, end: 20140311
  2. HYDROCHLOROQUINE [Concomitant]
     Active Substance: HYDROXYCHLOROQUINE SULFATE
  3. METOPROLOL [Concomitant]
     Active Substance: METOPROLOL
  4. XANAX [Concomitant]
     Active Substance: ALPRAZOLAM
  5. NEURONTIN [Concomitant]
     Active Substance: GABAPENTIN
  6. SOMA [Concomitant]
     Active Substance: CARISOPRODOL
  7. CYCLOBENZAPRINE [Concomitant]
     Active Substance: CYCLOBENZAPRINE
  8. VITAMIN D (ERGOCALCIFEROL) [Concomitant]
     Active Substance: ERGOCALCIFEROL
  9. ASPIRIN (ACETYLSALICYLIC ACID) [Concomitant]
     Active Substance: ASPIRIN
  10. TRAMADOL (TRAMADOL HYDROCHLORIDE) [Concomitant]
     Active Substance: TRAMADOL HYDROCHLORIDE

REACTIONS (3)
  - Chest pain [None]
  - Product used for unknown indication [None]
  - Blood pressure increased [None]

NARRATIVE: CASE EVENT DATE: 20140306
